FAERS Safety Report 7368243-5 (Version None)
Quarter: 2011Q1

REPORT INFORMATION
  Report Type: 
  Country: None (occurrence: None)
  Receive Date: 20110311
  Receipt Date: 20110304
  Transmission Date: 20110831
  Serious: Yes (Death)
  Sender: FDA-Public Use
  Company Number: 2011030012

PATIENT
  Age: 22 Year
  Sex: Female
  Weight: 54.4316 kg

DRUGS (4)
  1. OXYCODONE (OXYCODONE) [Suspect]
  2. TETRAHYDROCANNABINOL (TETRAHYDROCANNABINOL) [Suspect]
  3. CARISOPRODOL (CARISOPRODOL) [Suspect]
  4. ALCOHOL (ALCOHOL) [Suspect]

REACTIONS (5)
  - ACCIDENTAL DEATH [None]
  - DRUG DEPENDENCE [None]
  - PULMONARY OEDEMA [None]
  - TOXICITY TO VARIOUS AGENTS [None]
  - UNRESPONSIVE TO STIMULI [None]
